FAERS Safety Report 6607020-7 (Version None)
Quarter: 2010Q1

REPORT INFORMATION
  Report Type: 
  Country: None (occurrence: None)
  Receive Date: 20100226
  Receipt Date: 20100218
  Transmission Date: 20100710
  Serious: Yes (Hospitalization, Other)
  Sender: FDA-Public Use
  Company Number: US-AMGEN-QUU393853

PATIENT
  Sex: Male

DRUGS (1)
  1. ENBREL [Suspect]
     Indication: RHEUMATOID ARTHRITIS
     Route: 058
     Dates: start: 19980201

REACTIONS (5)
  - ARTHRALGIA [None]
  - BACK PAIN [None]
  - STAPHYLOCOCCAL INFECTION [None]
  - SYNCOPE [None]
  - WOUND [None]
